FAERS Safety Report 14557231 (Version 8)
Quarter: 2018Q2

REPORT INFORMATION
  Report Type: Report from Study
  Country: US (occurrence: US)
  Receive Date: 20180221
  Receipt Date: 20180523
  Transmission Date: 20180711
  Serious: Yes (Hospitalization, Other)
  Sender: FDA-Public Use
  Company Number: US-GLAXOSMITHKLINE-US2018021190

PATIENT
  Sex: Female

DRUGS (5)
  1. AMBRISENTAN [Suspect]
     Active Substance: AMBRISENTAN
     Indication: PRODUCT USED FOR UNKNOWN INDICATION
     Dosage: 10 MG, QD
     Route: 065
     Dates: start: 20140606
  2. VELETRI [Suspect]
     Active Substance: EPOPROSTENOL
     Indication: PRODUCT USED FOR UNKNOWN INDICATION
     Dosage: UNK
     Route: 065
  3. VELETRI [Suspect]
     Active Substance: EPOPROSTENOL
     Dosage: 27 NG/KG/MIN, UNK
     Route: 065
     Dates: start: 20180411
  4. ELIQUIS [Concomitant]
     Active Substance: APIXABAN
     Dosage: UNK
  5. ADCIRCA [Concomitant]
     Active Substance: TADALAFIL
     Dosage: UNK

REACTIONS (13)
  - Peripheral swelling [Unknown]
  - Fluid overload [Unknown]
  - Fatigue [Not Recovered/Not Resolved]
  - Unevaluable event [Unknown]
  - Flushing [Not Recovered/Not Resolved]
  - Dizziness [Not Recovered/Not Resolved]
  - Abnormal loss of weight [Unknown]
  - Loss of consciousness [Unknown]
  - Malaise [Not Recovered/Not Resolved]
  - Dyspnoea [Unknown]
  - Headache [Recovered/Resolved]
  - Injection site haemorrhage [Not Recovered/Not Resolved]
  - Diarrhoea [Unknown]
